FAERS Safety Report 14638023 (Version 1)
Quarter: 2018Q1

REPORT INFORMATION
  Report Type: Spontaneous
  Country: US (occurrence: US)
  Receive Date: 20180314
  Receipt Date: 20180314
  Transmission Date: 20180509
  Serious: No
  Sender: FDA-Public Use
  Company Number: US-VYERA PHARMACEUTICALS, LLC-2017VYE00054

PATIENT
  Age: 35 Year
  Sex: Male

DRUGS (10)
  1. MIRTAZAPINE. [Concomitant]
     Active Substance: MIRTAZAPINE
  2. TIVICAY [Concomitant]
     Active Substance: DOLUTEGRAVIR SODIUM
  3. LISINOPRIL. [Concomitant]
     Active Substance: LISINOPRIL
  4. SULFADIAZINE. [Concomitant]
     Active Substance: SULFADIAZINE
  5. FLUCONAZOLE. [Concomitant]
     Active Substance: FLUCONAZOLE
  6. DESCOVY [Concomitant]
     Active Substance: EMTRICITABINE\TENOFOVIR ALAFENAMIDE FUMARATE
  7. DARAPRIM [Suspect]
     Active Substance: PYRIMETHAMINE
     Indication: TOXOPLASMOSIS
     Dosage: 50 MG, 1X/DAY
     Route: 048
     Dates: start: 20171020
  8. AZITHROMYCIN ANHYDROUS. [Concomitant]
     Active Substance: AZITHROMYCIN ANHYDROUS
  9. LEUCOVORIN. [Concomitant]
     Active Substance: LEUCOVORIN
  10. VALPROIC ACID. [Concomitant]
     Active Substance: VALPROIC ACID

REACTIONS (1)
  - Pain [Unknown]

NARRATIVE: CASE EVENT DATE: 20171020
